FAERS Safety Report 10170132 (Version 1)
Quarter: 2014Q2

REPORT INFORMATION
  Report Type: Spontaneous
  Country: JP (occurrence: JP)
  Receive Date: 20140513
  Receipt Date: 20140513
  Transmission Date: 20141212
  Serious: Yes (Other)
  Sender: FDA-Public Use
  Company Number: JP-GLAXOSMITHKLINE-B0992420A

PATIENT
  Age: 57 Year
  Sex: Female

DRUGS (5)
  1. RELENZA [Suspect]
     Indication: ANTIVIRAL PROPHYLAXIS
     Route: 055
     Dates: start: 20140402
  2. ZITHROMAC [Concomitant]
     Route: 065
  3. LOXOPROFEN [Concomitant]
     Route: 048
  4. TRANSAMIN [Concomitant]
     Route: 065
  5. CHINESE MEDICINE [Concomitant]
     Route: 048

REACTIONS (6)
  - Altered state of consciousness [Recovering/Resolving]
  - Convulsion [Recovering/Resolving]
  - Epilepsy [Recovering/Resolving]
  - Fall [Recovering/Resolving]
  - Electroencephalogram abnormal [Recovering/Resolving]
  - Viral infection [Recovering/Resolving]
